FAERS Safety Report 21606101 (Version 1)
Quarter: 2022Q4

REPORT INFORMATION
  Report Type: Report from Study
  Country: US (occurrence: US)
  Receive Date: 20221117
  Receipt Date: 20221117
  Transmission Date: 20230112
  Serious: Yes (Other)
  Sender: FDA-Public Use
  Company Number: US-ABBVIE-4200984

PATIENT
  Age: 42 Year
  Sex: Female

DRUGS (2)
  1. SKYRIZI [Suspect]
     Active Substance: RISANKIZUMAB-RZAA
     Indication: Psoriasis
     Dosage: FORM STRENGTH: 150 MG
     Route: 058
  2. CELEBREX [Concomitant]
     Active Substance: CELECOXIB
     Indication: Product used for unknown indication

REACTIONS (7)
  - Meniscus injury [Unknown]
  - Gait disturbance [Unknown]
  - Bone disorder [Unknown]
  - Arthritis [Unknown]
  - Joint swelling [Unknown]
  - Skin disorder [Unknown]
  - Limb injury [Not Recovered/Not Resolved]

NARRATIVE: CASE EVENT DATE: 20220701
